FAERS Safety Report 8203314-2 (Version None)
Quarter: 2012Q1

REPORT INFORMATION
  Report Type: 
  Country: None (occurrence: None)
  Receive Date: 20120312
  Receipt Date: 20120306
  Transmission Date: 20120608
  Serious: Yes (Death, Other)
  Sender: FDA-Public Use
  Company Number: SE-ASTRAZENECA-2012SE15489

PATIENT
  Age: 25 Year
  Sex: Female

DRUGS (2)
  1. LAMOTRIGINE [Concomitant]
  2. SEROQUEL [Suspect]
     Route: 048

REACTIONS (3)
  - DEATH [None]
  - SUICIDAL IDEATION [None]
  - HEADACHE [None]
